FAERS Safety Report 9499619 (Version 1)
Quarter: 2013Q3

REPORT INFORMATION
  Report Type: Spontaneous
  Country: GB (occurrence: None)
  Receive Date: 20130903
  Receipt Date: 20130903
  Transmission Date: 20140515
  Serious: Yes (Life-Threatening, Hospitalization, Other)
  Sender: FDA-Public Use
  Company Number: AUR-APL-2013-07071

PATIENT
  Age: 51 Year
  Sex: Male
  Weight: 92.8 kg

DRUGS (3)
  1. RIBAVIRIN [Suspect]
     Indication: HEPATITIS C
     Dosage: 400 MG (200 MG, 2 IN 1 D), ORAL
     Route: 048
     Dates: start: 20120928, end: 2012
  2. PEGINTERFERON ALFA-2B [Suspect]
     Indication: HEPATITIS C
     Route: 058
     Dates: start: 20120928, end: 2012
  3. TELAPREVIR [Suspect]
     Indication: HEPATITIS C
     Dosage: 2250 MG (750 MG, 3 IN 1 D), ORAL
     Route: 048
     Dates: start: 20120928, end: 20121229

REACTIONS (28)
  - Pain [None]
  - Rash generalised [None]
  - Skin swelling [None]
  - Alopecia [None]
  - Impetigo [None]
  - Mental status changes [None]
  - Tearfulness [None]
  - Arthralgia [None]
  - Pruritus [None]
  - Emotional disorder [None]
  - Anaemia [None]
  - Swelling face [None]
  - Local swelling [None]
  - Swelling [None]
  - Eye oedema [None]
  - Hypoaesthesia [None]
  - Arthralgia [None]
  - Anal inflammation [None]
  - Dyspnoea [None]
  - Anal pruritus [None]
  - Swollen tongue [None]
  - Mobility decreased [None]
  - Joint stiffness [None]
  - Wound secretion [None]
  - Thermal burn [None]
  - Influenza like illness [None]
  - Oedema [None]
  - Confusional state [None]
